FAERS Safety Report 17536257 (Version 2)
Quarter: 2020Q1

REPORT INFORMATION
  Report Type: Spontaneous
  Country: JP (occurrence: JP)
  Receive Date: 20200313
  Receipt Date: 20200326
  Transmission Date: 20200409
  Serious: Yes (Other)
  Sender: FDA-Public Use
  Company Number: JP-TEVA-2019-JP-1136156

PATIENT
  Age: 80 Year
  Sex: Female

DRUGS (4)
  1. PRAMIPEXOLE HYDROCHLORIDE MONOHYDRATE [Concomitant]
     Active Substance: PRAMIPEXOLE
  2. LEVODOPA [Concomitant]
     Active Substance: LEVODOPA
  3. ROTIGOTINE [Concomitant]
     Active Substance: ROTIGOTINE
  4. AZILECT [Suspect]
     Active Substance: RASAGILINE MESYLATE
     Indication: PARKINSON^S DISEASE
     Dosage: 1 MILLIGRAM DAILY;
     Route: 048
     Dates: start: 20180614, end: 20190813

REACTIONS (3)
  - Autonomic neuropathy [Recovered/Resolved]
  - Hyperhidrosis [Recovered/Resolved]
  - Condition aggravated [Recovered/Resolved]

NARRATIVE: CASE EVENT DATE: 20190813
